FAERS Safety Report 4744489-7 (Version None)
Quarter: 2005Q3

REPORT INFORMATION
  Report Type: 
  Country: None (occurrence: None)
  Receive Date: 20050811
  Receipt Date: 20050811
  Transmission Date: 20060218
  Serious: No
  Sender: FDA-Public Use
  Company Number: None

PATIENT
  Age: 67 Year
  Sex: Female

DRUGS (1)
  1. ZOCOR [Suspect]
     Indication: HYPERLIPIDAEMIA
     Dosage: 40MG ONE @ HSM   (D/C DOSE 8/4/05)
     Dates: start: 20050103, end: 20050804

REACTIONS (3)
  - ASTHENIA [None]
  - DIZZINESS [None]
  - HEADACHE [None]
